FAERS Safety Report 16768493 (Version 1)
Quarter: 2019Q3

REPORT INFORMATION
  Report Type: Spontaneous
  Country: FR (occurrence: FR)
  Receive Date: 20190903
  Receipt Date: 20190903
  Transmission Date: 20191005
  Serious: Yes (Hospitalization, Other)
  Sender: FDA-Public Use
  Company Number: PHHY2019FR201567

PATIENT
  Age: 32 Year
  Sex: Male
  Weight: 64 kg

DRUGS (6)
  1. TRIMEBUTINE [Concomitant]
     Active Substance: TRIMEBUTINE
     Indication: GASTROINTESTINAL DISORDER
     Dosage: UNK
     Route: 065
  2. SPASFON [Concomitant]
     Indication: GASTROINTESTINAL DISORDER
     Dosage: UNK
     Route: 065
  3. SMECTITE [Concomitant]
     Active Substance: MONTMORILLONITE
     Indication: GASTROINTESTINAL DISORDER
     Dosage: UNK
     Route: 048
  4. FLAGYL [Suspect]
     Active Substance: METRONIDAZOLE\METRONIDAZOLE HYDROCHLORIDE
     Indication: PRODUCT USED FOR UNKNOWN INDICATION
     Dosage: UNK
     Route: 048
     Dates: start: 20120718, end: 20120721
  5. PARACETAMOL [Suspect]
     Active Substance: ACETAMINOPHEN
     Dosage: 5 G, QD
     Route: 048
     Dates: start: 20120717, end: 20120717
  6. PARACETAMOL [Suspect]
     Active Substance: ACETAMINOPHEN
     Indication: GASTROINTESTINAL DISORDER
     Dosage: 4 G,QD
     Route: 048
     Dates: start: 20120716, end: 20120716

REACTIONS (1)
  - Hepatocellular injury [Recovering/Resolving]

NARRATIVE: CASE EVENT DATE: 20120722
